FAERS Safety Report 6922620-2 (Version None)
Quarter: 2010Q3

REPORT INFORMATION
  Report Type: 
  Country: None (occurrence: None)
  Receive Date: 20100813
  Receipt Date: 20100804
  Transmission Date: 20110219
  Serious: Yes (Hospitalization)
  Sender: FDA-Public Use
  Company Number: CA-JNJFOC-20100802070

PATIENT
  Sex: Male
  Weight: 65 kg

DRUGS (5)
  1. REMICADE [Suspect]
     Indication: ANKYLOSING SPONDYLITIS
     Route: 042
  2. ASACOL [Concomitant]
  3. ZOPICLONE [Concomitant]
  4. SEROQUEL [Concomitant]
  5. PERCOCET [Concomitant]

REACTIONS (3)
  - ANKYLOSING SPONDYLITIS [None]
  - LUNG NEOPLASM [None]
  - PNEUMONIA [None]
